FAERS Safety Report 4807255-X (Version None)
Quarter: 2005Q4

REPORT INFORMATION
  Report Type: 
  Country: None (occurrence: None)
  Receive Date: 20051020
  Receipt Date: 20051020
  Transmission Date: 20060501
  Serious: Yes (Life-Threatening, Hospitalization)
  Sender: FDA-Public Use
  Company Number: None

PATIENT
  Age: 58 Year
  Sex: Male
  Weight: 73.9363 kg

DRUGS (1)
  1. WARFARIN  2MG [Suspect]
     Indication: ATRIAL FIBRILLATION
     Dosage: 10MG  MWF  PO
     Route: 048
     Dates: start: 20050921, end: 20051018

REACTIONS (4)
  - FAECES DISCOLOURED [None]
  - GASTROINTESTINAL HAEMORRHAGE [None]
  - INTERNATIONAL NORMALISED RATIO INCREASED [None]
  - NAUSEA [None]
